FAERS Safety Report 7356530-6 (Version None)
Quarter: 2011Q1

REPORT INFORMATION
  Report Type: 
  Country: None (occurrence: None)
  Receive Date: 20110316
  Receipt Date: 20110302
  Transmission Date: 20110831
  Serious: Yes (Hospitalization)
  Sender: FDA-Public Use
  Company Number: PHFR2011IE01656

PATIENT
  Sex: Male

DRUGS (2)
  1. CHLORPROMAZINE [Suspect]
     Dosage: UNK
  2. CLOZARIL [Suspect]
     Indication: SCHIZOPHRENIA
     Dosage: UNK
     Route: 048
     Dates: start: 20031002

REACTIONS (2)
  - URINARY TRACT INFECTION [None]
  - NEUROLEPTIC MALIGNANT SYNDROME [None]
